FAERS Safety Report 6866889-1 (Version None)
Quarter: 2010Q2

REPORT INFORMATION
  Report Type: 
  Country: None (occurrence: None)
  Receive Date: 20100607
  Receipt Date: 20100301
  Transmission Date: 20101027
  Serious: No
  Sender: FDA-Public Use
  Company Number: 2010-00298

PATIENT
  Age: 29 Year
  Sex: Female
  Weight: 74.8435 kg

DRUGS (1)
  1. ZICAM EXTREME CONGESTION RELIEF [Suspect]
     Dosage: BID X 2 DAYS
     Dates: start: 20100225, end: 20100227

REACTIONS (2)
  - AGEUSIA [None]
  - ANOSMIA [None]
